FAERS Safety Report 4993458-0 (Version None)
Quarter: 2006Q2

REPORT INFORMATION
  Report Type: 
  Country: None (occurrence: None)
  Receive Date: 20060504
  Receipt Date: 20060504
  Transmission Date: 20061013
  Serious: Yes (Other)
  Sender: FDA-Public Use
  Company Number: None

PATIENT
  Age: 48 Year
  Sex: Female
  Weight: 61.6892 kg

DRUGS (1)
  1. AMBIEN CR [Suspect]
     Indication: INSOMNIA
     Dosage: 1 TABLET NIGHTLY PO
     Route: 048
     Dates: start: 20020104, end: 20060430

REACTIONS (6)
  - ABNORMAL SLEEP-RELATED EVENT [None]
  - ALCOHOL USE [None]
  - AMNESIA [None]
  - DEMENTIA ALZHEIMER'S TYPE [None]
  - MARITAL PROBLEM [None]
  - MENTAL DISORDER [None]
